FAERS Safety Report 18513656 (Version 1)
Quarter: 2020Q4

REPORT INFORMATION
  Report Type: Spontaneous
  Country: US (occurrence: US)
  Receive Date: 20201117
  Receipt Date: 20201117
  Transmission Date: 20210114
  Serious: No
  Sender: FDA-Public Use
  Company Number: US-TOLMAR, INC.-20US023902

PATIENT
  Age: 29 Year
  Sex: Female

DRUGS (4)
  1. ENOXAPARIN [Suspect]
     Active Substance: ENOXAPARIN
     Indication: PROPHYLAXIS
     Dosage: 40 MG, QD
  2. LETROZOLE. [Suspect]
     Active Substance: LETROZOLE
     Indication: OVARIAN HYPERSTIMULATION SYNDROME
     Dosage: 5 MG, QD
  3. CABERGOLINE. [Suspect]
     Active Substance: CABERGOLINE
     Indication: OVARIAN HYPERSTIMULATION SYNDROME
     Dosage: 0.5 MG, QD
  4. ELIGARD [Suspect]
     Active Substance: LEUPROLIDE ACETATE
     Indication: OOCYTE HARVEST
     Dosage: 2 MG, SINGLE
     Route: 065

REACTIONS (2)
  - Oedema peripheral [Unknown]
  - Off label use [Unknown]
